FAERS Safety Report 20764715 (Version 1)
Quarter: 2022Q2

REPORT INFORMATION
  Report Type: Spontaneous
  Country: US (occurrence: US)
  Receive Date: 20220428
  Receipt Date: 20220428
  Transmission Date: 20220720
  Serious: No
  Sender: FDA-Public Use
  Company Number: US-PFIZER INC-202101107355

PATIENT
  Age: 55 Year
  Sex: Female
  Weight: 50.8 kg

DRUGS (1)
  1. XANAX [Suspect]
     Active Substance: ALPRAZOLAM
     Indication: Anxiety
     Dosage: 1 MG, 3X/DAY

REACTIONS (2)
  - Pain [Unknown]
  - Intentional product misuse [Unknown]
